FAERS Safety Report 23268452 (Version 1)
Quarter: 2023Q4

REPORT INFORMATION
  Report Type: Spontaneous
  Country: CN (occurrence: CN)
  Receive Date: 20231206
  Receipt Date: 20231206
  Transmission Date: 20240110
  Serious: Yes (Hospitalization)
  Sender: FDA-Public Use
  Company Number: CN-Eisai-EC-2023-154107

PATIENT
  Age: 67 Year
  Sex: Male
  Weight: 70 kg

DRUGS (1)
  1. LENVIMA [Suspect]
     Active Substance: LENVATINIB
     Indication: Lung neoplasm malignant
     Route: 048
     Dates: start: 20230515, end: 20230815

REACTIONS (1)
  - Dermatitis allergic [Recovering/Resolving]

NARRATIVE: CASE EVENT DATE: 20230715
